FAERS Safety Report 16032690 (Version 12)
Quarter: 2023Q1

REPORT INFORMATION
  Report Type: Other
  Country: CA (occurrence: None)
  Receive Date: 20190305
  Receipt Date: 20230330
  Transmission Date: 20230418
  Serious: Yes (Other)
  Sender: FDA-Public Use
  Company Number: CA-ROCHE-2168880

PATIENT
  Age: 57 Year
  Sex: Female
  Weight: 59 kg

DRUGS (5)
  1. OCREVUS [Suspect]
     Active Substance: OCRELIZUMAB
     Indication: Primary progressive multiple sclerosis
     Dosage: 300MG DAY 0 AND DAY 14, THEN 600MG EVERY 6 MONTHS?RECEIVED SECOND DOSE ON 22/AUG/2018
     Route: 042
     Dates: start: 20180808
  2. EPIVAL [Concomitant]
     Active Substance: DIVALPROEX SODIUM
     Indication: Product used for unknown indication
     Dosage: 4 PILLS IN AFTERNOON,2 PILL
  3. SYNTHROID [Concomitant]
     Active Substance: LEVOTHYROXINE SODIUM
     Route: 048
     Dates: start: 2010
  4. DIVALPROEX SODIUM [Concomitant]
     Active Substance: DIVALPROEX SODIUM
     Route: 048
  5. GRAVOL [Concomitant]
     Active Substance: DIMENHYDRINATE
     Route: 048

REACTIONS (26)
  - Sleep apnoea syndrome [Recovered/Resolved]
  - Adjustment disorder with depressed mood [Recovered/Resolved]
  - Depression [Recovered/Resolved]
  - Infusion related reaction [Unknown]
  - Dyspnoea exertional [Recovered/Resolved]
  - Dyspepsia [Recovered/Resolved]
  - Oropharyngeal pain [Not Recovered/Not Resolved]
  - Infusion related reaction [Recovered/Resolved]
  - Fatigue [Recovered/Resolved]
  - Mental fatigue [Recovered/Resolved]
  - Nausea [Recovered/Resolved]
  - Asthenia [Recovered/Resolved]
  - Alopecia [Not Recovered/Not Resolved]
  - Psychiatric symptom [Recovered/Resolved]
  - Crying [Recovered/Resolved]
  - Headache [Recovered/Resolved]
  - Oral fungal infection [Recovered/Resolved]
  - Paraesthesia [Recovered/Resolved]
  - Nausea [Recovered/Resolved]
  - Oropharyngeal pain [Not Recovered/Not Resolved]
  - Urinary incontinence [Not Recovered/Not Resolved]
  - Depressed mood [Recovered/Resolved]
  - Muscular weakness [Recovered/Resolved]
  - Dyspnoea [Recovered/Resolved]
  - Fatigue [Recovered/Resolved]
  - Asthenia [Recovered/Resolved]

NARRATIVE: CASE EVENT DATE: 20180808
